FAERS Safety Report 13356248 (Version 2)
Quarter: 2017Q2

REPORT INFORMATION
  Report Type: Spontaneous
  Country: US (occurrence: US)
  Receive Date: 20170321
  Receipt Date: 20170512
  Transmission Date: 20170830
  Serious: No
  Sender: FDA-Public Use
  Company Number: US-PFIZER INC-2017113605

PATIENT
  Age: 27 Year
  Sex: Female

DRUGS (6)
  1. RELPAX [Interacting]
     Active Substance: ELETRIPTAN HYDROBROMIDE
     Dosage: 40 MG, UNK (CUTTING THEM IN HALF)
  2. VERAPAMIL HYDROCHLORIDE. [Interacting]
     Active Substance: VERAPAMIL HYDROCHLORIDE
     Indication: MITRAL VALVE INCOMPETENCE
  3. LEXAPRO [Concomitant]
     Active Substance: ESCITALOPRAM OXALATE
     Dosage: UNK
  4. RELPAX [Suspect]
     Active Substance: ELETRIPTAN HYDROBROMIDE
     Indication: MIGRAINE
     Dosage: 40 MG, UNK
  5. RELPAX [Interacting]
     Active Substance: ELETRIPTAN HYDROBROMIDE
     Dosage: 20-40 MG, AS NEEDED
  6. VERAPAMIL HYDROCHLORIDE. [Interacting]
     Active Substance: VERAPAMIL HYDROCHLORIDE
     Indication: MITRAL VALVE PROLAPSE
     Dosage: 120 MG, UNK

REACTIONS (3)
  - Drug interaction [Unknown]
  - Intentional product use issue [Unknown]
  - Drug ineffective [Unknown]
